FAERS Safety Report 23091219 (Version 1)
Quarter: 2023Q4

REPORT INFORMATION
  Report Type: Spontaneous
  Country: US (occurrence: US)
  Receive Date: 20231020
  Receipt Date: 20231020
  Transmission Date: 20240109
  Serious: No
  Sender: FDA-Public Use
  Company Number: US-BRISTOL-MYERS SQUIBB COMPANY-2023-150247

PATIENT

DRUGS (2)
  1. ABRAXANE [Suspect]
     Active Substance: PACLITAXEL
     Indication: Ovarian cancer
     Dosage: DOSE : 405 MG; 151 MG;     FREQ : ^405 MG GIVEN THROUGH IV EVERY 3 WEEKS^; ^151 MG GIVEN EVERY WEEK^
     Route: 042
  2. ABRAXANE [Suspect]
     Active Substance: PACLITAXEL
     Dosage: DOSE : 405 MG; 151 MG;     FREQ : ^405 MG GIVEN THROUGH IV EVERY 3 WEEKS^; ^151 MG GIVEN EVERY WEEK^
     Route: 042

REACTIONS (1)
  - Off label use [Unknown]
